FAERS Safety Report 24283924 (Version 1)
Quarter: 2024Q3

REPORT INFORMATION
  Report Type: Report from Study
  Country: US (occurrence: US)
  Receive Date: 20240905
  Receipt Date: 20240905
  Transmission Date: 20241016
  Serious: No
  Sender: ALEXION PHARMACEUTICALS
  Company Number: US-AstraZeneca-CH-00697615A

PATIENT
  Sex: Female

DRUGS (1)
  1. SOLIRIS [Suspect]
     Active Substance: ECULIZUMAB
     Indication: Myasthenia gravis
     Dosage: UNK
     Route: 065

REACTIONS (8)
  - Muscular weakness [Unknown]
  - Gait disturbance [Unknown]
  - Fatigue [Recovering/Resolving]
  - Symptom recurrence [Unknown]
  - Dysstasia [Recovering/Resolving]
  - Asthenia [Recovering/Resolving]
  - Visual impairment [Unknown]
  - Gastrointestinal disorder [Unknown]
